FAERS Safety Report 5712074-6 (Version None)
Quarter: 2008Q2

REPORT INFORMATION
  Report Type: 
  Country: None (occurrence: None)
  Receive Date: 20080418
  Receipt Date: 20080408
  Transmission Date: 20081010
  Serious: Yes (Death)
  Sender: FDA-Public Use
  Company Number: GXKR2008US03431

PATIENT
  Age: 64 Year
  Sex: Female

DRUGS (5)
  1. CYCLOSPORINE [Suspect]
     Indication: IMMUNOSUPPRESSION
  2. METHYLPREDNISOLONE [Suspect]
     Indication: IMMUNOSUPPRESSION
  3. GANCICLOVIR [Concomitant]
  4. PIPERACILLIN - TAZOBACTAM (NGX) PIPERACILLIN, TAZOBACTAM) UNKNOWN [Suspect]
     Indication: PYELONEPHRITIS
  5. VANCOMYCIN [Suspect]
     Indication: PYELONEPHRITIS

REACTIONS (12)
  - ASPERGILLOSIS [None]
  - BLOOD CULTURE POSITIVE [None]
  - COMPLICATIONS OF TRANSPLANTED KIDNEY [None]
  - CULTURE URINE POSITIVE [None]
  - CYTOMEGALOVIRUS INFECTION [None]
  - ESCHAR [None]
  - ESCHERICHIA INFECTION [None]
  - POSTOPERATIVE WOUND COMPLICATION [None]
  - PYELONEPHRITIS [None]
  - RENAL TUBULAR NECROSIS [None]
  - ULCER [None]
  - URETERAL DISORDER [None]
